FAERS Safety Report 6540454-8 (Version None)
Quarter: 2010Q1

REPORT INFORMATION
  Report Type: 
  Country: None (occurrence: None)
  Receive Date: 20100113
  Receipt Date: 20091229
  Transmission Date: 20100710
  Serious: Yes (Other)
  Sender: FDA-Public Use
  Company Number: AU-1180354

PATIENT
  Age: 11 Year
  Sex: Male

DRUGS (1)
  1. MAXIDEX [Suspect]
     Dosage: OPHTHALMIC
     Route: 047
     Dates: start: 20091224

REACTIONS (2)
  - EYE INFLAMMATION [None]
  - FACIAL PARESIS [None]
